FAERS Safety Report 4603775-1 (Version None)
Quarter: 2005Q1

REPORT INFORMATION
  Report Type: 
  Country: None (occurrence: None)
  Receive Date: 20050308
  Receipt Date: 20050308
  Transmission Date: 20050727
  Serious: Yes (Hospitalization)
  Sender: FDA-Public Use
  Company Number: None

PATIENT
  Age: 54 Year
  Sex: Male
  Weight: 56.7 kg

DRUGS (1)
  1. PERPHENAZINE [Suspect]

REACTIONS (1)
  - TACHYCARDIA [None]
